FAERS Safety Report 8064311-3 (Version None)
Quarter: 2011Q4

REPORT INFORMATION
  Report Type: 
  Country: None (occurrence: None)
  Receive Date: 20111221
  Receipt Date: 20110503
  Transmission Date: 20120403
  Serious: Yes (Other)
  Sender: FDA-Public Use
  Company Number: PHHY2011US33519

PATIENT
  Age: 38 Year
  Sex: Female
  Weight: 78 kg

DRUGS (7)
  1. EXJADE [Suspect]
     Indication: IRON OVERLOAD
     Dosage: 2000 MG, QD, ORAL
     Route: 048
     Dates: start: 20060412
  2. EXJADE [Suspect]
     Indication: IRON METABOLISM DISORDER
     Dosage: 2000 MG, QD, ORAL
     Route: 048
     Dates: start: 20060412
  3. ESZOPICLONE [Concomitant]
  4. PAROXETINE HCL [Concomitant]
  5. WARFARIN SODIUM [Concomitant]
  6. GLIPIZIDE [Concomitant]
  7. OMEPRAZOLE [Concomitant]

REACTIONS (4)
  - HEPATIC ENZYME INCREASED [None]
  - BLOOD CREATININE INCREASED [None]
  - NAUSEA [None]
  - FATIGUE [None]
